FAERS Safety Report 8756987 (Version 2)
Quarter: 2012Q4

REPORT INFORMATION
  Report Type: Report from Study
  Country: JP (occurrence: JP)
  Receive Date: 20120828
  Receipt Date: 20121210
  Transmission Date: 20130627
  Serious: Yes (Other)
  Sender: FDA-Public Use
  Company Number: JP-VERTEX PHARMACEUTICAL INC.-AE-2012-010569

PATIENT
  Age: 68 Year
  Sex: Female

DRUGS (13)
  1. VX-950 (TELAPREVIR) [Suspect]
     Indication: CHRONIC HEPATITIS C
     Dosage: 1500 mg, qd
     Route: 048
     Dates: start: 20120515, end: 20120603
  2. VX-950 (TELAPREVIR) [Suspect]
     Dosage: 1000 mg, qd
     Route: 048
     Dates: start: 20120604, end: 20120806
  3. RIBAVIRIN [Suspect]
     Indication: CHRONIC HEPATITIS C
     Dosage: 400 mg, qd
     Route: 048
     Dates: start: 20120515, end: 20120603
  4. RIBAVIRIN [Suspect]
     Dosage: 200 mg, qd
     Route: 048
     Dates: start: 20120604, end: 20120930
  5. RIBAVIRIN [Suspect]
     Dosage: 400 mg, qd
     Route: 048
     Dates: start: 20121001, end: 20121022
  6. PEGINTERFERON ALFA-2B [Suspect]
     Indication: CHRONIC HEPATITIS C
     Dosage: 1.5 ?g/kg, qw
     Route: 058
     Dates: start: 20120515, end: 20120604
  7. PEGINTERFERON ALFA-2B [Suspect]
     Dosage: 1.2 ?g/kg, qw
     Route: 058
     Dates: start: 20120611, end: 20121022
  8. CEPHADOL [Concomitant]
     Dosage: 75 mg, qd
     Route: 048
  9. MERISLON [Concomitant]
     Dosage: 18 mg, qd
     Route: 048
  10. FEROTYM [Concomitant]
     Dosage: 100 mg, qd
     Route: 048
  11. CLARITIN REDITABS [Concomitant]
     Dosage: 10 mg, qd
     Route: 048
  12. LIVALO [Concomitant]
     Dosage: 1 mg, qd
     Route: 048
  13. EPADEL   S [Concomitant]
     Dosage: 1800 mg, qd
     Route: 048

REACTIONS (7)
  - Anaemia [Not Recovered/Not Resolved]
  - Anaemia [Not Recovered/Not Resolved]
  - Anaemia [Not Recovered/Not Resolved]
  - Neutrophil count decreased [Not Recovered/Not Resolved]
  - Platelet count decreased [Not Recovered/Not Resolved]
  - Platelet count decreased [Not Recovered/Not Resolved]
  - Platelet count decreased [Not Recovered/Not Resolved]
